FAERS Safety Report 8542438-7 (Version None)
Quarter: 2012Q3

REPORT INFORMATION
  Report Type: 
  Country: None (occurrence: None)
  Receive Date: 20120726
  Receipt Date: 20111213
  Transmission Date: 20120928
  Serious: Yes (Other)
  Sender: FDA-Public Use
  Company Number: US-ASTRAZENECA-2006UW27359

PATIENT
  Age: 38 Year
  Sex: Female

DRUGS (38)
  1. SEROQUEL [Suspect]
     Indication: SLEEP DISORDER
     Route: 048
     Dates: start: 19990625
  2. SEROQUEL [Suspect]
     Route: 048
     Dates: start: 20060414
  3. ZYPREXA [Concomitant]
     Dates: start: 20000812, end: 20001019
  4. TRAZODONE HYDROCHLORIDE [Concomitant]
     Route: 048
     Dates: start: 20020301
  5. DEPAKOTE [Concomitant]
     Route: 048
     Dates: start: 20060613
  6. TEMAZEPAM [Concomitant]
     Route: 048
  7. AMBIEN [Concomitant]
     Route: 048
  8. SEROQUEL [Suspect]
     Route: 048
     Dates: start: 20020301
  9. CYMBALTA [Concomitant]
     Route: 048
  10. FLEXERIL [Concomitant]
     Route: 048
  11. SEROQUEL [Suspect]
     Indication: PSYCHOTIC DISORDER
     Route: 048
     Dates: start: 19990625
  12. LIPITOR [Concomitant]
     Route: 048
  13. SEROQUEL [Suspect]
     Route: 048
     Dates: start: 20020301
  14. RISPERDAL [Concomitant]
     Dates: start: 20000501, end: 20061012
  15. DEPAKOTE [Concomitant]
     Route: 048
     Dates: start: 19990625
  16. GABAPENTIN [Concomitant]
     Route: 048
     Dates: start: 20020301
  17. GABAPENTIN [Concomitant]
     Dosage: 300 MG- 1 IN MORNING AND 2 AT BEDTIME
     Route: 048
  18. LISINOPRIL [Concomitant]
     Route: 048
     Dates: start: 20060613
  19. LISINOPRIL [Concomitant]
     Route: 048
     Dates: start: 20020301
  20. GLIPIZIDE [Concomitant]
     Route: 048
  21. PREVACID [Concomitant]
     Dates: start: 20020301
  22. BIAXIN [Concomitant]
     Dates: start: 20020301
  23. TRAZODONE HYDROCHLORIDE [Concomitant]
     Route: 048
  24. CLARITIN [Concomitant]
     Route: 048
  25. VIOXX [Concomitant]
     Dates: start: 20020301
  26. PROVENTIL [Concomitant]
     Route: 048
  27. NAPROXEN [Concomitant]
     Route: 048
  28. HALOPERIDOL [Concomitant]
     Route: 065
  29. PAXIL [Concomitant]
     Dates: start: 20020301
  30. SEROQUEL [Suspect]
     Route: 048
     Dates: start: 20011220, end: 20060623
  31. SEROQUEL [Suspect]
     Route: 048
     Dates: start: 20011220, end: 20060623
  32. SEROQUEL [Suspect]
     Route: 048
     Dates: start: 20060414
  33. LORAZEPAM [Concomitant]
     Route: 048
  34. DESYREL [Concomitant]
     Indication: INSOMNIA
     Dates: start: 19990625
  35. ZYPREXA [Concomitant]
     Dates: start: 20000812, end: 20001019
  36. WELLBUTRIN [Concomitant]
     Route: 048
  37. LISINOPRIL [Concomitant]
     Route: 048
  38. FLEXERIL [Concomitant]
     Dates: start: 20020301

REACTIONS (4)
  - TYPE 2 DIABETES MELLITUS [None]
  - KETOACIDOSIS [None]
  - HYPERGLYCAEMIA [None]
  - PANCREATITIS [None]
